FAERS Safety Report 13793595 (Version 2)
Quarter: 2018Q1

REPORT INFORMATION
  Report Type: Spontaneous
  Country: GB (occurrence: GB)
  Receive Date: 20170726
  Receipt Date: 20180206
  Transmission Date: 20180508
  Serious: Yes (Other)
  Sender: FDA-Public Use
  Company Number: GB-PFIZER INC-1798644

PATIENT
  Age: 90 Year
  Sex: Female

DRUGS (5)
  1. CIPROFLOXACIN. [Suspect]
     Active Substance: CIPROFLOXACIN
     Indication: NOSOCOMIAL INFECTION
     Dosage: 400 MG/200 ML 4 DOSES BEFORE BEING SWITCHED BACK TO ORAL CIPROFLOXACIN FREQ: 2 DAY; INTERVAL: 1
     Route: 041
     Dates: start: 20110509, end: 20110511
  2. CIPROFLOXACIN. [Suspect]
     Active Substance: CIPROFLOXACIN
     Dosage: 500 MG, 4 DOSES RECEIVED, FREQ: 2 DAY; INTERVAL: 1
     Route: 048
     Dates: start: 20110512, end: 20110513
  3. CIPROFLOXACIN. [Suspect]
     Active Substance: CIPROFLOXACIN
     Indication: NOSOCOMIAL INFECTION
     Dosage: 500 MG, RECEIVED 7 DOSES THEN SWITCHED TO INTRAVENOUS; FREQ: 3 DAY; INTERVAL: 1
     Route: 048
     Dates: start: 20110505, end: 20110508
  4. OMEPRAZOLE. [Concomitant]
     Active Substance: OMEPRAZOLE
     Dosage: 20 MG, ONGOING THERAPY. BEFORE AND THROUGHOUT ADMISSION; FREQ: 1 DAY; INTERVAL: 1
  5. CO AMOXICLAV [Suspect]
     Active Substance: AMOXICILLIN\CLAVULANIC ACID
     Indication: NOSOCOMIAL INFECTION
     Dosage: 1.2 G, 1000MG/200 MG. STAT DOSE ONLY RECEIVED FREQ: 3 DAY; INTERVAL: 1
     Route: 041
     Dates: start: 20110504, end: 20110504

REACTIONS (6)
  - Abdominal distension [Recovering/Resolving]
  - Gastroenteritis norovirus [Unknown]
  - Pyrexia [Recovering/Resolving]
  - Malaise [Recovering/Resolving]
  - Vomiting [Recovering/Resolving]
  - Clostridium difficile colitis [Recovering/Resolving]

NARRATIVE: CASE EVENT DATE: 20110509
